FAERS Safety Report 21465836 (Version 2)
Quarter: 2022Q4

REPORT INFORMATION
  Report Type: Spontaneous
  Country: US (occurrence: US)
  Receive Date: 20221017
  Receipt Date: 20221021
  Transmission Date: 20230112
  Serious: Yes (Life-Threatening, Hospitalization, Other)
  Sender: FDA-Public Use
  Company Number: US-PFIZER INC-PV202200078306

PATIENT
  Age: 57 Year
  Sex: Male

DRUGS (2)
  1. SIROLIMUS [Suspect]
     Active Substance: SIROLIMUS
     Indication: Renal transplant
     Dosage: UNK
  2. SIROLIMUS [Suspect]
     Active Substance: SIROLIMUS
     Indication: Pancreas transplant

REACTIONS (2)
  - Acute respiratory distress syndrome [Recovering/Resolving]
  - Pulmonary alveolar haemorrhage [Recovering/Resolving]
